FAERS Safety Report 10240519 (Version 1)
Quarter: 2014Q2

REPORT INFORMATION
  Report Type: Spontaneous
  Country: US (occurrence: US)
  Receive Date: 20140617
  Receipt Date: 20140617
  Transmission Date: 20141212
  Serious: Yes (Hospitalization)
  Sender: FDA-Public Use
  Company Number: US-BRISTOL-MYERS SQUIBB COMPANY-20962270

PATIENT
  Age: 84 Year
  Sex: Male

DRUGS (3)
  1. COUMADIN [Suspect]
     Dosage: 7.5MG FIVE DAYS A WEEK, AND 5MG ON WEDNESDAYS AND SATURDAYS
  2. INDERAL [Concomitant]
  3. METOPROLOL [Concomitant]

REACTIONS (4)
  - Myocardial infarction [Unknown]
  - Hip arthroplasty [Unknown]
  - Knee arthroplasty [Unknown]
  - Weight decreased [Unknown]
